FAERS Safety Report 9054654 (Version 1)
Quarter: 2013Q1

REPORT INFORMATION
  Report Type: Spontaneous
  Country: FR (occurrence: FR)
  Receive Date: 20130208
  Receipt Date: 20130208
  Transmission Date: 20140127
  Serious: Yes (Hospitalization)
  Sender: FDA-Public Use
  Company Number: FR-BRISTOL-MYERS SQUIBB COMPANY-17331307

PATIENT
  Age: 92 Year
  Sex: Female

DRUGS (8)
  1. COAPROVEL [Suspect]
     Dosage: 1DF-COAPROVEL 300 MG/25 MG
     Route: 048
     Dates: end: 20121222
  2. DEDROGYL [Concomitant]
     Dosage: 1DF=15MG/100ML
     Dates: end: 20121225
  3. SEROPLEX [Concomitant]
     Route: 048
  4. ZOPICLONE [Concomitant]
     Route: 048
  5. DESLORATADINE [Concomitant]
     Route: 048
     Dates: end: 20121223
  6. INEXIUM [Concomitant]
  7. PLAVIX [Concomitant]
     Route: 048
  8. FENOFIBRATE [Concomitant]
     Route: 048

REACTIONS (4)
  - Hypokalaemia [Recovered/Resolved]
  - Electrocardiogram abnormal [Recovered/Resolved]
  - Partial seizures [Recovered/Resolved]
  - Diarrhoea [Recovered/Resolved]
